FAERS Safety Report 20159665 (Version 2)
Quarter: 2022Q3

REPORT INFORMATION
  Report Type: Report from Study
  Country: US (occurrence: US)
  Receive Date: 20211208
  Receipt Date: 20220712
  Transmission Date: 20221027
  Serious: Yes (Other)
  Sender: FDA-Public Use
  Company Number: US-SA-SAC20211205000057

PATIENT
  Age: 46 Year
  Sex: Female

DRUGS (3)
  1. AUBAGIO [Suspect]
     Active Substance: TERIFLUNOMIDE
     Indication: Multiple sclerosis
     Dosage: 14 MG, QD
     Route: 048
     Dates: start: 20210714
  2. TRAZODONE [Concomitant]
     Active Substance: TRAZODONE HYDROCHLORIDE
     Indication: Insomnia
  3. BUSPAR [Concomitant]
     Active Substance: BUSPIRONE HYDROCHLORIDE

REACTIONS (6)
  - Clinically isolated syndrome [Unknown]
  - Multiple sclerosis [Unknown]
  - Paraesthesia [Unknown]
  - Electric shock sensation [Not Recovered/Not Resolved]
  - Hypoaesthesia [Unknown]
  - Anxiety [Unknown]

NARRATIVE: CASE EVENT DATE: 20211101
